FAERS Safety Report 8228059-4 (Version None)
Quarter: 2012Q1

REPORT INFORMATION
  Report Type: 
  Country: None (occurrence: None)
  Receive Date: 20120322
  Receipt Date: 20120109
  Transmission Date: 20120608
  Serious: No
  Sender: FDA-Public Use
  Company Number: US-BRISTOL-MYERS SQUIBB COMPANY-16337610

PATIENT
  Age: 44 Year
  Sex: Female

DRUGS (2)
  1. ERBITUX [Suspect]
  2. SIMVASTATIN [Concomitant]

REACTIONS (5)
  - RASH [None]
  - ERYTHEMA [None]
  - ACNE [None]
  - SKIN FISSURES [None]
  - MICTURITION DISORDER [None]
